FAERS Safety Report 8763425 (Version 2)
Quarter: 2013Q4

REPORT INFORMATION
  Report Type: Spontaneous
  Country: US (occurrence: US)
  Receive Date: 20120831
  Receipt Date: 20131105
  Transmission Date: 20140711
  Serious: Yes (Life-Threatening)
  Sender: FDA-Public Use
  Company Number: US-MERCK-1208USA011084

PATIENT
  Age: 33 Year
  Sex: Female

DRUGS (6)
  1. SAPHRIS [Suspect]
     Dosage: 5 MG, HS
     Route: 060
  2. LAMICTAL [Concomitant]
  3. ABILIFY [Concomitant]
  4. ATIVAN [Concomitant]
  5. RESTORIL (CHLORMEZANONE) [Concomitant]
  6. TOPAMAX [Concomitant]

REACTIONS (2)
  - Mood swings [Unknown]
  - Underdose [Unknown]
